FAERS Safety Report 16840306 (Version 2)
Quarter: 2019Q3

REPORT INFORMATION
  Report Type: Spontaneous
  Country: JP (occurrence: JP)
  Receive Date: 20190923
  Receipt Date: 20190923
  Transmission Date: 20191005
  Serious: Yes (Other)
  Sender: FDA-Public Use
  Company Number: PHHY2019JP217417

PATIENT
  Age: 72 Year
  Sex: Female

DRUGS (2)
  1. CICLOSPORIN [Suspect]
     Active Substance: CYCLOSPORINE
     Dosage: UNK (DOSE REDUCED)
     Route: 065
  2. CICLOSPORIN [Suspect]
     Active Substance: CYCLOSPORINE
     Indication: NEURODERMATITIS
     Dosage: 100 MG, UNK (FOR APPROXIMATELY 10 YEARS)
     Route: 065

REACTIONS (3)
  - Pseudolymphoma [Recovered/Resolved]
  - Lymphoid tissue hyperplasia [Recovered/Resolved]
  - Epstein-Barr virus associated lymphoproliferative disorder [Recovered/Resolved]
